FAERS Safety Report 15892231 (Version 1)
Quarter: 2019Q1

REPORT INFORMATION
  Report Type: Spontaneous
  Country: DE (occurrence: DE)
  Receive Date: 20190130
  Receipt Date: 20190130
  Transmission Date: 20190417
  Serious: No
  Sender: FDA-Public Use
  Company Number: DE-IPSEN-CABO-18014787

PATIENT
  Sex: Female

DRUGS (1)
  1. CABOMETYX [Suspect]
     Active Substance: CABOZANTINIB S-MALATE
     Indication: PRODUCT USED FOR UNKNOWN INDICATION
     Dosage: 40 MG, UNK

REACTIONS (5)
  - Secretion discharge [Unknown]
  - Oral fungal infection [Unknown]
  - Constipation [Unknown]
  - Dysgeusia [Unknown]
  - Diarrhoea [Unknown]
